FAERS Safety Report 9922300 (Version 9)
Quarter: 2022Q2

REPORT INFORMATION
  Report Type: Spontaneous
  Country: JP (occurrence: JP)
  Receive Date: 20140225
  Receipt Date: 20220523
  Transmission Date: 20220720
  Serious: Yes (Hospitalization, Other)
  Sender: FDA-Public Use
  Company Number: None

PATIENT

DRUGS (2)
  1. VALACYCLOVIR HYDROCHLORIDE [Suspect]
     Active Substance: VALACYCLOVIR HYDROCHLORIDE
     Indication: Herpes zoster
     Dosage: 1000 MG, TID
     Route: 048
     Dates: start: 20140214, end: 20140217
  2. LYRICA [Concomitant]
     Active Substance: PREGABALIN
     Dosage: UNK

REACTIONS (20)
  - Toxic encephalopathy [Not Recovered/Not Resolved]
  - Dizziness [Not Recovered/Not Resolved]
  - Vomiting [Recovered/Resolved]
  - Dyskinesia [Recovered/Resolved]
  - Myoclonus [Recovered/Resolved]
  - Altered state of consciousness [Recovered/Resolved]
  - Acute kidney injury [Unknown]
  - Nephrolithiasis [Unknown]
  - Seizure [Recovering/Resolving]
  - Muscle spasms [Unknown]
  - Renal impairment [Unknown]
  - Peripheral swelling [Unknown]
  - Eyelid oedema [Recovering/Resolving]
  - Skin ulcer [Unknown]
  - Pain [Unknown]
  - Malaise [Unknown]
  - Fluid intake reduced [Unknown]
  - Hypophagia [Unknown]
  - Dehydration [Unknown]
  - Prescribed overdose [Unknown]

NARRATIVE: CASE EVENT DATE: 20140201
